FAERS Safety Report 20968268 (Version 1)
Quarter: 2022Q2

REPORT INFORMATION
  Report Type: Spontaneous
  Country: JP (occurrence: JP)
  Receive Date: 20220616
  Receipt Date: 20220616
  Transmission Date: 20220721
  Serious: Yes (Death)
  Sender: FDA-Public Use
  Company Number: JP-NOVARTISPH-NVSC2022JP138484

PATIENT
  Age: 53 Year
  Sex: Male

DRUGS (1)
  1. RECLAST [Suspect]
     Active Substance: ZOLEDRONIC ACID
     Indication: Product used for unknown indication
     Dosage: 5 MG, Q12MO (5 MG ONCE YEARLY)
     Route: 041
     Dates: start: 20170511

REACTIONS (1)
  - Death [Fatal]

NARRATIVE: CASE EVENT DATE: 20220215
